FAERS Safety Report 24607834 (Version 1)
Quarter: 2024Q4

REPORT INFORMATION
  Report Type: Spontaneous
  Country: US (occurrence: None)
  Receive Date: 20241111
  Receipt Date: 20241111
  Transmission Date: 20250114
  Serious: Yes (Disabling)
  Sender: Public
  Company Number: None

PATIENT
  Age: 39 Year
  Sex: Female
  Weight: 76.5 kg

DRUGS (8)
  1. CITALOPRAM [Suspect]
     Active Substance: CITALOPRAM
     Indication: Depression
     Dosage: 30 TABLETS DAILY ORAL
     Route: 048
     Dates: start: 20241021, end: 20241110
  2. CITALOPRAM [Suspect]
     Active Substance: CITALOPRAM
     Indication: Bipolar disorder
  3. ADVAIR HFA [Concomitant]
     Active Substance: FLUTICASONE PROPIONATE\SALMETEROL XINAFOATE
  4. METHYLPHENIDATE [Concomitant]
     Active Substance: METHYLPHENIDATE
  5. ALBUTEROL [Concomitant]
  6. CALCIUM\CHOLECALCIFEROL [Concomitant]
     Active Substance: CALCIUM\CHOLECALCIFEROL
  7. DAILY MULTIVITAMIND [Concomitant]
  8. A (LORATDINE) [Concomitant]

REACTIONS (7)
  - Hypoaesthesia [None]
  - Muscular weakness [None]
  - Fatigue [None]
  - Blepharospasm [None]
  - Nausea [None]
  - Abdominal pain upper [None]
  - Dry mouth [None]

NARRATIVE: CASE EVENT DATE: 20241110
